FAERS Safety Report 8614538 (Version 5)
Quarter: 2013Q4

REPORT INFORMATION
  Report Type: Spontaneous
  Country: US (occurrence: US)
  Receive Date: 20120530
  Receipt Date: 20131108
  Transmission Date: 20140711
  Serious: Yes (Hospitalization, Other)
  Sender: FDA-Public Use
  Company Number: US-009507513-2012SP000191

PATIENT
  Age: 20 Year
  Sex: Female
  Weight: 83.92 kg

DRUGS (1)
  1. NUVARING [Suspect]
     Indication: CONTRACEPTION
     Dates: start: 200712, end: 20090128

REACTIONS (23)
  - Suicide attempt [Not Recovered/Not Resolved]
  - Postpartum depression [Unknown]
  - Pulmonary embolism [Recovered/Resolved]
  - Depression [Not Recovered/Not Resolved]
  - Upper respiratory tract infection [Not Recovered/Not Resolved]
  - Bronchitis [Unknown]
  - Cervical dysplasia [Unknown]
  - Cardiac murmur [Unknown]
  - Muscular weakness [Unknown]
  - Splenic cyst [Unknown]
  - Cervicitis [Not Recovered/Not Resolved]
  - Migraine [Not Recovered/Not Resolved]
  - Menorrhagia [Unknown]
  - Post-traumatic stress disorder [Unknown]
  - Suicidal ideation [Unknown]
  - Cervicitis human papilloma virus [Unknown]
  - Major depression [Unknown]
  - Suicide attempt [Unknown]
  - Wrist fracture [Unknown]
  - Wrist fracture [Unknown]
  - Seasonal allergy [Unknown]
  - Headache [Unknown]
  - Abdominal pain lower [Unknown]
